FAERS Safety Report 7610482-X (Version None)
Quarter: 2011Q3

REPORT INFORMATION
  Report Type: 
  Country: None (occurrence: None)
  Receive Date: 20110715
  Receipt Date: 20100108
  Transmission Date: 20111222
  Serious: Yes (Death, Other)
  Sender: FDA-Public Use
  Company Number: US-BAYER-201010451NA

PATIENT
  Age: 68 Year
  Sex: Male
  Weight: 81.4 kg

DRUGS (6)
  1. TRASYLOL [Suspect]
     Indication: PRODUCT USED FOR UNKNOWN INDICATION
     Dosage: UNK
     Route: 042
     Dates: start: 20010320, end: 20010320
  2. FENTANYL [Concomitant]
     Dosage: UNK
     Route: 042
     Dates: start: 20010320
  3. ACETYLSALICYLIC ACID SRT [Concomitant]
  4. VASERETIC/DIOVAN [Concomitant]
     Dosage: 10/25
  5. LOPRESSOR [Concomitant]
  6. PREVACID [Concomitant]

REACTIONS (12)
  - RENAL IMPAIRMENT [None]
  - PAIN [None]
  - UNEVALUABLE EVENT [None]
  - EMOTIONAL DISTRESS [None]
  - FEAR [None]
  - STRESS [None]
  - ANXIETY [None]
  - RENAL INJURY [None]
  - RENAL FAILURE [None]
  - DEATH [None]
  - INJURY [None]
  - ANHEDONIA [None]
